FAERS Safety Report 20080074 (Version 11)
Quarter: 2023Q2

REPORT INFORMATION
  Report Type: Report from Study
  Country: DE (occurrence: DE)
  Receive Date: 20211117
  Receipt Date: 20230511
  Transmission Date: 20230722
  Serious: Yes (Other)
  Sender: FDA-Public Use
  Company Number: DE-002147023-NVSC2020DE228478

PATIENT
  Age: 75 Year
  Sex: Female
  Weight: 49 kg

DRUGS (14)
  1. LETROZOLE [Suspect]
     Active Substance: LETROZOLE
     Indication: Breast cancer
     Dosage: 2.5 MILLIGRAM, QD
     Route: 048
     Dates: start: 20200701
  2. LETROZOLE [Suspect]
     Active Substance: LETROZOLE
     Indication: Hormone receptor positive HER2 negative breast cancer
  3. KISQALI [Suspect]
     Active Substance: RIBOCICLIB
     Indication: Breast cancer
     Dosage: 600 MG QD (SCHEME 21 DAYS INTAKE, 7 DAYS PAUSE)
     Route: 048
     Dates: start: 20200701, end: 20200714
  4. KISQALI [Suspect]
     Active Substance: RIBOCICLIB
     Indication: Hormone receptor positive HER2 negative breast cancer
     Dosage: 400 MG QD (SCHEME 21 DAYS INTAKE, 7 DAYS PAUSE)
     Route: 048
     Dates: start: 20200729, end: 20200825
  5. KISQALI [Suspect]
     Active Substance: RIBOCICLIB
     Dosage: 400 MG QD (SCHEME 21 DAYS INTAKE, 7 DAYS PAUSE)
     Route: 048
     Dates: start: 20200909, end: 20201103
  6. KISQALI [Suspect]
     Active Substance: RIBOCICLIB
     Dosage: 400 MG QD (SCHEME 21 DAYS INTAKE, 7 DAYS PAUSE)
     Route: 048
     Dates: start: 20201110, end: 20201207
  7. KISQALI [Suspect]
     Active Substance: RIBOCICLIB
     Dosage: 400 MG QD (SCHEME 21 DAYS INTAKE, 7 DAYS PAUSE)
     Route: 048
     Dates: start: 20201209, end: 20210202
  8. KISQALI [Suspect]
     Active Substance: RIBOCICLIB
     Dosage: 400 MG QD (SCHEME 21 DAYS INTAKE, 7 DAYS PAUSE)
     Route: 048
     Dates: start: 20210217, end: 20210928
  9. KISQALI [Suspect]
     Active Substance: RIBOCICLIB
     Dosage: UNK
     Route: 065
  10. KISQALI [Suspect]
     Active Substance: RIBOCICLIB
     Dosage: 400 MG QD (SCHEME 21 DAYS INTAKE, 7 DAYS PAUSE)
     Route: 065
     Dates: start: 20211222, end: 20220215
  11. KISQALI [Suspect]
     Active Substance: RIBOCICLIB
     Dosage: 400 MG QD (SCHEME 21 DAYS INTAKE, 7 DAYS PAUSE)
     Route: 065
     Dates: start: 20211117, end: 20211214
  12. KISQALI [Suspect]
     Active Substance: RIBOCICLIB
     Dosage: 400 MG QD (SCHEME 21 DAYS INTAKE, 7 DAYS PAUSE)
     Route: 048
     Dates: start: 20220310, end: 20220727
  13. KISQALI [Suspect]
     Active Substance: RIBOCICLIB
     Dosage: 400 MG QD (SCHEME 21 DAYS INTAKE, 7 DAYS PAUSE)
     Route: 048
     Dates: start: 20220921, end: 20221018
  14. KISQALI [Suspect]
     Active Substance: RIBOCICLIB
     Dosage: SCHEME 21 DAYS INTAKE, 7 DAYS PAUSE
     Route: 048

REACTIONS (10)
  - Fatigue [Not Recovered/Not Resolved]
  - Urinary tract infection [Recovered/Resolved]
  - Depression [Not Recovered/Not Resolved]
  - Headache [Recovered/Resolved]
  - Blood creatinine increased [Not Recovered/Not Resolved]
  - Toothache [Not Recovered/Not Resolved]
  - Sleep disorder [Not Recovered/Not Resolved]
  - Anaemia [Not Recovered/Not Resolved]
  - Diplopia [Recovered/Resolved]
  - Peri-implantitis [Recovered/Resolved]

NARRATIVE: CASE EVENT DATE: 20200715
